FAERS Safety Report 14482718 (Version 4)
Quarter: 2018Q3

REPORT INFORMATION
  Report Type: Report from Study
  Country: DE (occurrence: DE)
  Receive Date: 20180203
  Receipt Date: 20180917
  Transmission Date: 20181010
  Serious: Yes (Hospitalization)
  Sender: FDA-Public Use
  Company Number: DE-TEVA-2018-DE-851608

PATIENT
  Age: 57 Year
  Sex: Female
  Weight: 70 kg

DRUGS (23)
  1. ABRAXANE [Suspect]
     Active Substance: PACLITAXEL
     Dosage: 80 MG/M2 DAILY;
     Route: 041
     Dates: start: 20170530
  2. PANTOPRAZOL BETA [Concomitant]
     Indication: PROPHYLAXIS
     Dosage: 40 MILLIGRAM DAILY;
     Route: 048
     Dates: start: 201702
  3. CARBOPLATIN. [Suspect]
     Active Substance: CARBOPLATIN
     Dosage: 6 MG*MIN/ML
     Route: 041
     Dates: start: 20170413, end: 20170825
  4. FERINJECT [Concomitant]
     Active Substance: FERRIC CARBOXYMALTOSE
     Indication: ANAEMIA
     Dosage: 1000 MILLIGRAM DAILY;
     Route: 058
     Dates: start: 20170420, end: 20170420
  5. DEXAMETHASON [Concomitant]
     Active Substance: DEXAMETHASONE
     Indication: PROPHYLAXIS
     Route: 041
     Dates: start: 20170413
  6. CARBOPLATIN. [Suspect]
     Active Substance: CARBOPLATIN
     Dosage: 750 MG?MIN/ML
     Route: 041
     Dates: start: 20170413, end: 20170825
  7. ABRAXANE [Suspect]
     Active Substance: PACLITAXEL
     Indication: NON-SMALL CELL LUNG CANCER
     Dosage: 180 MG/M2 DAILY;
     Route: 041
     Dates: start: 20170504, end: 201705
  8. ABRAXANE [Suspect]
     Active Substance: PACLITAXEL
     Dosage: 145 MG/M2 DAILY;
     Route: 041
     Dates: start: 20170713, end: 20170901
  9. ONDENSATRON [Concomitant]
     Indication: PROPHYLAXIS
     Route: 048
  10. MST [Concomitant]
     Active Substance: MORPHINE SULFATE\NALTREXONE HYDROCHLORIDE
     Indication: PROPHYLAXIS
     Dosage: 60 MILLIGRAM DAILY;
     Route: 048
     Dates: start: 201702
  11. LYRICA [Concomitant]
     Active Substance: PREGABALIN
     Indication: PROPHYLAXIS
     Dosage: 100 MILLIGRAM DAILY;
     Route: 048
     Dates: start: 201702
  12. NOVAMINSULFON?RATIOPHARM [Concomitant]
     Active Substance: METAMIZOLE
     Indication: PROPHYLAXIS
     Dosage: 120 DOSAGE FORMS DAILY;
     Route: 048
     Dates: start: 201702
  13. GRANISETRON [Concomitant]
     Active Substance: GRANISETRON
     Indication: PROPHYLAXIS
     Route: 041
     Dates: start: 20170413
  14. ABRAXANE [Suspect]
     Active Substance: PACLITAXEL
     Dosage: 145 MG/M2 DAILY;
     Route: 041
     Dates: start: 20170629
  15. FERINJECT [Concomitant]
     Active Substance: FERRIC CARBOXYMALTOSE
     Dosage: 1000 MILLIGRAM DAILY;
     Route: 058
     Dates: start: 20170713, end: 20170713
  16. LYRICA [Concomitant]
     Active Substance: PREGABALIN
     Dosage: 50 MILLIGRAM DAILY;
     Route: 048
     Dates: start: 201702
  17. MST [Concomitant]
     Active Substance: MORPHINE SULFATE\NALTREXONE HYDROCHLORIDE
     Dosage: 60 MG
     Route: 048
     Dates: start: 201702
  18. ABRAXANE [Suspect]
     Active Substance: PACLITAXEL
     Dosage: 180 MG/M2 DAILY;
     Route: 041
     Dates: start: 20170413, end: 20170427
  19. MCP?RATIOPHARM [Concomitant]
     Active Substance: METOCLOPRAMIDE HYDROCHLORIDE
     Indication: PROPHYLAXIS
     Route: 048
  20. ABRAXANE [Suspect]
     Active Substance: PACLITAXEL
     Dosage: 80 MILLIGRAM DAILY;
     Route: 041
     Dates: start: 20170825, end: 20170901
  21. NOVAMINSULFON?RATIOPHARM [Concomitant]
     Active Substance: METAMIZOLE
     Dosage: 40 DOSAGE FORMS DAILY; 120 DF
     Route: 048
     Dates: start: 201702
  22. CARBOPLATIN. [Suspect]
     Active Substance: CARBOPLATIN
     Indication: NON-SMALL CELL LUNG CANCER
     Dosage: 750 MG?MIN/ML
     Route: 041
  23. ABRAXANE [Suspect]
     Active Substance: PACLITAXEL
     Dosage: 100 MG/M2 DAILY; 100 MILLIGRAM/SQ. METER
     Route: 041
     Dates: start: 20170413, end: 20170427

REACTIONS (17)
  - Anaemia [Recovered/Resolved]
  - Eyelid oedema [Recovered/Resolved]
  - Thrombocytopenia [Recovered/Resolved]
  - Thrombocytopenia [Recovered/Resolved]
  - Leukopenia [Recovered/Resolved]
  - Neutrophil count decreased [Recovered/Resolved]
  - Polyneuropathy [Recovered/Resolved]
  - Neutrophil count decreased [Recovered/Resolved]
  - Leukopenia [Recovered/Resolved]
  - Anaemia [Recovered/Resolved]
  - Anaemia [Recovered/Resolved]
  - Fatigue [Recovered/Resolved]
  - Leukopenia [Recovered/Resolved]
  - Neutrophil count decreased [Recovered/Resolved]
  - Epistaxis [Recovered/Resolved]
  - Diarrhoea [Recovered/Resolved]
  - Neutrophil count decreased [Recovered/Resolved]

NARRATIVE: CASE EVENT DATE: 20170420
